FAERS Safety Report 11950240 (Version 3)
Quarter: 2016Q1

REPORT INFORMATION
  Report Type: Report from Study
  Country: CA (occurrence: CA)
  Receive Date: 20160126
  Receipt Date: 20160331
  Transmission Date: 20160526
  Serious: Yes (Hospitalization, Other)
  Sender: FDA-Public Use
  Company Number: CA-ROCHE-1581867

PATIENT
  Age: 33 Year
  Sex: Female

DRUGS (6)
  1. ARTHROTEC [Concomitant]
     Active Substance: DICLOFENAC SODIUM\MISOPROSTOL
  2. DIPHENHYDRAMINE HCL [Concomitant]
     Active Substance: DIPHENHYDRAMINE HYDROCHLORIDE
     Route: 048
     Dates: start: 20150520
  3. ARAVA [Concomitant]
     Active Substance: LEFLUNOMIDE
  4. ACETAMINOPHEN. [Concomitant]
     Active Substance: ACETAMINOPHEN
     Route: 048
     Dates: start: 20150520
  5. RITUXAN [Suspect]
     Active Substance: RITUXIMAB
     Indication: RHEUMATOID ARTHRITIS
     Dosage: MOST RECENT RITUXIMAB INFUSION WAS RECEIVED ON 02/JUN/2015.
     Route: 042
     Dates: start: 20150520
  6. METHYLPREDNISOLONE. [Concomitant]
     Active Substance: METHYLPREDNISOLONE
     Route: 042
     Dates: start: 20150520

REACTIONS (8)
  - Throat irritation [Recovered/Resolved]
  - Oxygen saturation decreased [Unknown]
  - Wound [Not Recovered/Not Resolved]
  - Oropharyngeal pain [Recovered/Resolved]
  - Localised infection [Unknown]
  - Ear pruritus [Recovered/Resolved]
  - Ill-defined disorder [Unknown]
  - Hypotension [Unknown]

NARRATIVE: CASE EVENT DATE: 20150520
